FAERS Safety Report 6227396-2 (Version None)
Quarter: 2009Q2

REPORT INFORMATION
  Report Type: 
  Country: None (occurrence: None)
  Receive Date: 20090610
  Receipt Date: 20090610
  Transmission Date: 20091009
  Serious: Yes (Hospitalization)
  Sender: FDA-Public Use
  Company Number: None

PATIENT
  Age: 60 Year
  Sex: Male
  Weight: 54.4 kg

DRUGS (1)
  1. AZATHIOPRINE [Suspect]
     Indication: COLITIS ULCERATIVE
     Dosage: 50 MG EVERY DAY PO
     Route: 048
     Dates: start: 20081224, end: 20090521

REACTIONS (1)
  - PANCREATITIS [None]
